FAERS Safety Report 5027800-1 (Version None)
Quarter: 2006Q2

REPORT INFORMATION
  Report Type: 
  Country: None (occurrence: None)
  Receive Date: 20060616
  Receipt Date: 20060605
  Transmission Date: 20061013
  Serious: Yes (Death)
  Sender: FDA-Public Use
  Company Number: US-JNJFOC-20060503719

PATIENT
  Sex: Male
  Weight: 86.18 kg

DRUGS (31)
  1. REMICADE [Suspect]
     Route: 042
  2. REMICADE [Suspect]
     Route: 042
  3. REMICADE [Suspect]
     Route: 042
  4. REMICADE [Suspect]
     Route: 042
  5. REMICADE [Suspect]
     Route: 042
  6. REMICADE [Suspect]
     Route: 042
  7. REMICADE [Suspect]
     Route: 042
  8. REMICADE [Suspect]
     Route: 042
  9. REMICADE [Suspect]
     Route: 042
  10. REMICADE [Suspect]
     Route: 042
  11. REMICADE [Suspect]
     Route: 042
  12. REMICADE [Suspect]
     Route: 042
  13. REMICADE [Suspect]
     Route: 042
  14. REMICADE [Suspect]
     Route: 042
  15. REMICADE [Suspect]
     Route: 042
  16. REMICADE [Suspect]
     Route: 042
  17. REMICADE [Suspect]
     Route: 042
  18. REMICADE [Suspect]
     Route: 042
  19. REMICADE [Suspect]
     Route: 042
  20. REMICADE [Suspect]
     Route: 042
  21. REMICADE [Suspect]
     Route: 042
  22. REMICADE [Suspect]
     Route: 042
  23. REMICADE [Suspect]
     Indication: RHEUMATOID ARTHRITIS
     Route: 042
  24. MECLIZINE [Concomitant]
     Route: 048
  25. PAXIL [Concomitant]
     Route: 048
  26. FLOMAX [Concomitant]
     Route: 048
  27. FLOMAX [Concomitant]
     Route: 048
  28. FOLIC ACID [Concomitant]
     Route: 048
  29. ASPIRIN [Concomitant]
  30. ENBREL [Concomitant]
     Route: 058
  31. ACTONEL [Concomitant]

REACTIONS (1)
  - DISSEMINATED TUBERCULOSIS [None]
